FAERS Safety Report 6702039-X (Version None)
Quarter: 2010Q2

REPORT INFORMATION
  Report Type: 
  Country: None (occurrence: None)
  Receive Date: 20100429
  Receipt Date: 20100416
  Transmission Date: 20101027
  Serious: Yes (Hospitalization)
  Sender: FDA-Public Use
  Company Number: US-RB-005797-10

PATIENT
  Sex: Female

DRUGS (2)
  1. DEVELOPMENTAL COSMETIC PRODUCT [Suspect]
  2. PROACTIVE [Suspect]

REACTIONS (2)
  - PILONIDAL CYST [None]
  - SUBCUTANEOUS ABSCESS [None]
